FAERS Safety Report 15477973 (Version 1)
Quarter: 2018Q4

REPORT INFORMATION
  Report Type: Spontaneous
  Country: US (occurrence: US)
  Receive Date: 20181002
  Receipt Date: 20181002
  Transmission Date: 20190205
  Serious: No
  Sender: FDA-Public Use
  Company Number: None

PATIENT
  Age: 76 Year

DRUGS (1)
  1. ZYTIGA [Suspect]
     Active Substance: ABIRATERONE ACETATE
     Dates: start: 201808, end: 201808

REACTIONS (1)
  - Treatment failure [None]

NARRATIVE: CASE EVENT DATE: 20181001
